FAERS Safety Report 5357428-5 (Version None)
Quarter: 2007Q2

REPORT INFORMATION
  Report Type: 
  Country: None (occurrence: None)
  Receive Date: 20070614
  Receipt Date: 20070607
  Transmission Date: 20071010
  Serious: Yes (Hospitalization)
  Sender: FDA-Public Use
  Company Number: US-ASTRAZENECA-2007UW13787

PATIENT
  Age: 73 Year
  Sex: Female

DRUGS (8)
  1. ARIMIDEX [Suspect]
     Route: 048
  2. EFFEXOR XR [Concomitant]
  3. FISH OIL [Concomitant]
  4. SYNTHROID [Concomitant]
  5. TOPROL-XL [Concomitant]
     Route: 048
  6. VASOTEC [Concomitant]
  7. VYTORIN [Concomitant]
     Dosage: 10/40MG
  8. BONIVA [Concomitant]

REACTIONS (1)
  - HAEMORRHAGIC STROKE [None]
